FAERS Safety Report 9339702 (Version 2)
Quarter: 2013Q3

REPORT INFORMATION
  Report Type: Spontaneous
  Country: US (occurrence: US)
  Receive Date: 20130610
  Receipt Date: 20130715
  Transmission Date: 20140515
  Serious: No
  Sender: FDA-Public Use
  Company Number: US-BIOGENIDEC-2013BI051534

PATIENT
  Age: 50 Year
  Sex: Female

DRUGS (1)
  1. TYSABRI [Suspect]
     Indication: MULTIPLE SCLEROSIS
     Route: 042
     Dates: start: 20130409

REACTIONS (4)
  - Tooth extraction [Recovered/Resolved]
  - Endodontic procedure [Recovered/Resolved]
  - Tooth infection [Recovered/Resolved]
  - Urinary tract infection [Not Recovered/Not Resolved]
